FAERS Safety Report 23924373 (Version 1)
Quarter: 2024Q2

REPORT INFORMATION
  Report Type: Report from Study
  Country: US (occurrence: None)
  Receive Date: 20240531
  Receipt Date: 20240531
  Transmission Date: 20240716
  Serious: Yes (Hospitalization)
  Sender: FDA-Public Use
  Company Number: 2024A123895

PATIENT
  Sex: Female

DRUGS (15)
  1. TAGRISSO [Suspect]
     Active Substance: OSIMERTINIB
     Indication: Lung carcinoma cell type unspecified stage 0
     Dosage: TAKE 1 TABLET (80 MG) BY MOUTH DAILY
     Route: 048
  2. OMEPRAZOLE [Suspect]
     Active Substance: DONEPEZIL HYDROCHLORIDE\OMEPRAZOLE\OMEPRAZOLE MAGNESIUM
     Route: 048
  3. DEXAMETHASONE [Concomitant]
     Active Substance: DEXAMETHASONE
  4. OMEPRAZOLE [Concomitant]
     Active Substance: DONEPEZIL HYDROCHLORIDE\OMEPRAZOLE\OMEPRAZOLE MAGNESIUM
  5. CALTRATE [Concomitant]
     Active Substance: CALCIUM CARBONATE
     Dosage: 600
  6. DOCUSATE CAL [Concomitant]
  7. ELIQUIS [Concomitant]
     Active Substance: APIXABAN
  8. FUROSEMIDE [Concomitant]
     Active Substance: FUROSEMIDE
  9. KEPPRA [Concomitant]
     Active Substance: LEVETIRACETAM
  10. MIRALAX POW [Concomitant]
     Dosage: 17 GM/SCOOP
  11. SENNA [Concomitant]
     Active Substance: SENNA LEAF\SENNOSIDES\SENNOSIDES A AND B
  12. FAMOTIDINE [Concomitant]
     Active Substance: FAMOTIDINE
  13. MORPHINE SULFATE [Concomitant]
     Active Substance: MORPHINE SULFATE
  14. NOLOXONE HCL [Concomitant]
     Dosage: 4 MG/0,1 M
  15. POTASSIUM [Concomitant]
     Active Substance: POTASSIUM
     Dosage: 20 MEQ/10

REACTIONS (4)
  - Faeces discoloured [Unknown]
  - Gastrointestinal haemorrhage [Unknown]
  - Burn oesophageal [Unknown]
  - Nausea [Unknown]
